APPROVED DRUG PRODUCT: VANCENASE AQ
Active Ingredient: BECLOMETHASONE DIPROPIONATE MONOHYDRATE
Strength: EQ 0.084MG DIPROP/SPRAY
Dosage Form/Route: SPRAY, METERED;NASAL
Application: N020469 | Product #001
Applicant: SCHERING CORP
Approved: Jun 26, 1996 | RLD: No | RS: No | Type: DISCN